FAERS Safety Report 4654203-1 (Version None)
Quarter: 2005Q2

REPORT INFORMATION
  Report Type: 
  Country: None (occurrence: None)
  Receive Date: 20050504
  Receipt Date: 20040713
  Transmission Date: 20051028
  Serious: Yes (Hospitalization, Other)
  Sender: FDA-Public Use
  Company Number: 2004210467US

PATIENT
  Age: 69 Year
  Sex: Female
  Weight: 68.4932 kg

DRUGS (4)
  1. BEXTRA [Suspect]
     Indication: ARTHRITIS
  2. PAROXETINE HYDROCHLORIDE [Concomitant]
  3. HYDROCHLOROTHIAZIDE [Concomitant]
  4. DILTIAZEM HYDROCHLORIDE [Concomitant]

REACTIONS (3)
  - ACTINIC KERATOSIS [None]
  - ARTHRALGIA [None]
  - STEVENS-JOHNSON SYNDROME [None]
